FAERS Safety Report 4834911-X (Version None)
Quarter: 2005Q4

REPORT INFORMATION
  Report Type: 
  Country: None (occurrence: None)
  Receive Date: 20051122
  Receipt Date: 20051026
  Transmission Date: 20060501
  Serious: Yes (Hospitalization)
  Sender: FDA-Public Use
  Company Number: PHHO2005BR17109

PATIENT
  Age: 66 Year
  Sex: Female
  Weight: 61 kg

DRUGS (4)
  1. TRILEPTAL / GP 47680 / TRI 476B [Suspect]
     Indication: BIPOLAR DISORDER
     Dosage: 300MG 2 TABLETS BID
     Route: 048
  2. TRILEPTAL / GP 47680 / TRI 476B [Suspect]
     Dosage: 600MG 1 TABLET BID
     Route: 048
  3. GLIMEPIRIDE [Concomitant]
     Indication: DIABETES MELLITUS
  4. ENALAPRIL [Concomitant]
     Indication: HYPERTENSION

REACTIONS (1)
  - DEPRESSION [None]
